FAERS Safety Report 23785440 (Version 1)
Quarter: 2024Q2

REPORT INFORMATION
  Report Type: Spontaneous
  Country: GR (occurrence: GR)
  Receive Date: 20240425
  Receipt Date: 20240425
  Transmission Date: 20240716
  Serious: Yes (Other)
  Sender: FDA-Public Use
  Company Number: GR-DEM-004094

PATIENT
  Age: 46 Year
  Sex: Male

DRUGS (5)
  1. TADALAFIL [Interacting]
     Active Substance: TADALAFIL
     Indication: Prostatitis
     Dosage: 5 MG, DAILY
     Route: 048
     Dates: start: 20210730, end: 20210804
  2. TAMSULOSIN HYDROCHLORIDE [Interacting]
     Active Substance: TAMSULOSIN HYDROCHLORIDE
     Indication: Prostatitis
     Dosage: 0.4 MG, DAILY
     Route: 048
     Dates: start: 20210726
  3. TADALAFIL [Interacting]
     Active Substance: TADALAFIL
     Indication: Prostatitis
     Dosage: 5 MG, DAILY
     Route: 048
     Dates: start: 20210730, end: 20210804
  4. TABRIN [OFLOXACIN] [Concomitant]
     Indication: Prostatitis
     Dosage: 200 MG, OTHER (EVERY 12 HRS)
     Route: 048
     Dates: start: 20210726
  5. FLAGYL [Concomitant]
     Active Substance: METRONIDAZOLE\METRONIDAZOLE HYDROCHLORIDE
     Indication: Prostatitis
     Dosage: 500 MG, OTHER (EVERY 8HR)
     Route: 048
     Dates: start: 20210726

REACTIONS (4)
  - Drug interaction [Recovering/Resolving]
  - Heart rate increased [Recovered/Resolved]
  - Palpitations [Recovered/Resolved]
  - Nasal congestion [Recovered/Resolved]

NARRATIVE: CASE EVENT DATE: 20210101
